FAERS Safety Report 7347859-6 (Version None)
Quarter: 2011Q1

REPORT INFORMATION
  Report Type: 
  Country: None (occurrence: None)
  Receive Date: 20110311
  Receipt Date: 20110301
  Transmission Date: 20110831
  Serious: Yes (Other)
  Sender: FDA-Public Use
  Company Number: CA-JNJFOC-20101003815

PATIENT
  Sex: Female

DRUGS (7)
  1. STELARA [Suspect]
     Route: 058
  2. DIOVAN [Concomitant]
  3. VENTOLIN [Concomitant]
  4. FLOVENT [Concomitant]
  5. STELARA [Suspect]
     Indication: PSORIASIS
     Route: 058
  6. STELARA [Suspect]
     Route: 058
  7. STELARA [Suspect]
     Route: 058

REACTIONS (9)
  - PERTUSSIS [None]
  - BRONCHITIS [None]
  - EPHELIDES [None]
  - ASTHMA [None]
  - CHOKING [None]
  - OROPHARYNGEAL PAIN [None]
  - MYALGIA [None]
  - DYSPNOEA [None]
  - CHEST PAIN [None]
